FAERS Safety Report 20862857 (Version 1)
Quarter: 2022Q2

REPORT INFORMATION
  Report Type: Spontaneous
  Country: US (occurrence: None)
  Receive Date: 20220523
  Receipt Date: 20220523
  Transmission Date: 20220721
  Serious: No
  Sender: FDA-Public Use
  Company Number: None

PATIENT
  Age: 73 Year
  Sex: Male
  Weight: 108 kg

DRUGS (1)
  1. EPLERENONE [Suspect]
     Active Substance: EPLERENONE
     Indication: Cardiac failure congestive
     Dates: start: 20220111, end: 20220209

REACTIONS (4)
  - Diarrhoea [None]
  - Dyspnoea [None]
  - Asthenia [None]
  - Therapy cessation [None]

NARRATIVE: CASE EVENT DATE: 20220209
